FAERS Safety Report 6261569-8 (Version None)
Quarter: 2009Q3

REPORT INFORMATION
  Report Type: 
  Country: None (occurrence: None)
  Receive Date: 20090709
  Receipt Date: 20090706
  Transmission Date: 20100115
  Serious: Yes (Death, Hospitalization, Other)
  Sender: FDA-Public Use
  Company Number: PHHY2008FR28660

PATIENT
  Sex: Female
  Weight: 67 kg

DRUGS (4)
  1. ICL670A ICL+ [Suspect]
     Indication: HAEMOCHROMATOSIS
     Dosage: 1500 MG/DAY
     Dates: start: 20080226
  2. COAPROVEL [Concomitant]
     Indication: HYPERTENSION
     Dosage: 300 MG, QD
     Route: 065
  3. BISOPROLOL FUMARATE [Concomitant]
     Indication: HYPERTENSION
     Dosage: 1 DF, QD
     Route: 065
  4. INIPOMP [Concomitant]
     Indication: OESOPHAGITIS
     Dosage: 40 MG, BID
     Route: 065
     Dates: start: 20080717

REACTIONS (37)
  - ABDOMINAL MASS [None]
  - ANAEMIA [None]
  - BRONCHIAL OBSTRUCTION [None]
  - CARBOHYDRATE ANTIGEN 125 [None]
  - CARBOHYDRATE ANTIGEN 19-9 [None]
  - CHOKING [None]
  - COMA [None]
  - CONDITION AGGRAVATED [None]
  - CONFUSIONAL STATE [None]
  - DEATH [None]
  - DIARRHOEA [None]
  - DYSPHAGIA [None]
  - ELECTROCARDIOGRAM ABNORMAL [None]
  - FEEDING DISORDER [None]
  - GASTROINTESTINAL TUBE INSERTION [None]
  - GENERAL PHYSICAL HEALTH DETERIORATION [None]
  - GENERALISED OEDEMA [None]
  - HEART RATE INCREASED [None]
  - HEPATORENAL SYNDROME [None]
  - HEPATOSPLENOMEGALY [None]
  - HYPERTHERMIA [None]
  - ILEUS PARALYTIC [None]
  - INFECTION [None]
  - MENTAL DISORDER [None]
  - NUTRITIONAL CONDITION ABNORMAL [None]
  - OEDEMA PERIPHERAL [None]
  - OVARIAN NEOPLASM [None]
  - PANCYTOPENIA [None]
  - PERITONEAL EFFUSION [None]
  - PORTAL HYPERTENSION [None]
  - PYREXIA [None]
  - RENAL FAILURE ACUTE [None]
  - SEPSIS [None]
  - SPLENOMEGALY [None]
  - STAPHYLOCOCCAL INFECTION [None]
  - SUBILEUS [None]
  - WEIGHT DECREASED [None]
